FAERS Safety Report 6787846-X (Version None)
Quarter: 2010Q2

REPORT INFORMATION
  Report Type: 
  Country: None (occurrence: None)
  Receive Date: 20100621
  Receipt Date: 20100604
  Transmission Date: 20101027
  Serious: Yes (Death, Hospitalization)
  Sender: FDA-Public Use
  Company Number: IPC201006-000156

PATIENT
  Age: 88 Year
  Sex: Female

DRUGS (5)
  1. HYDROXYCHLOROQUINE SULFATE [Suspect]
     Dosage: 600 MG, B.I.D.
  2. METHOTREXATE [Suspect]
  3. PREDNISONE [Suspect]
     Dosage: DOSE REDUCED
  4. GLYBURIDE [Suspect]
  5. ENALAPRIL MALEATE [Suspect]

REACTIONS (9)
  - ASTHENIA [None]
  - HAEMOGLOBIN DECREASED [None]
  - HEART RATE INCREASED [None]
  - HYPERCAPNIA [None]
  - MUSCLE NECROSIS [None]
  - MYOSITIS [None]
  - OXYGEN SATURATION DECREASED [None]
  - PNEUMONIA [None]
  - RESPIRATORY FAILURE [None]
